FAERS Safety Report 8827819 (Version 1)
Quarter: 2012Q4

REPORT INFORMATION
  Report Type: 
  Country: US (occurrence: US)
  Receive Date: 20121005
  Receipt Date: 20121005
  Transmission Date: 20130627
  Serious: Yes (Other)
  Sender: FDA-Public Use
  Company Number: US-BAXTER-2012BAX018758

PATIENT
  Sex: Female
  Weight: 55.84 kg

DRUGS (4)
  1. CYCLOPHOSPHAMIDE FOR INJECTION, USP [Suspect]
     Indication: BREAST CANCER
     Route: 065
     Dates: start: 199805
  2. ADRIAMYCIN [Suspect]
     Indication: BREAST CANCER
     Route: 065
     Dates: start: 199805
  3. CARBOPLATIN [Suspect]
     Indication: BREAST CANCER
     Route: 065
     Dates: start: 199805
  4. CISPLATIN [Suspect]
     Indication: BREAST CANCER
     Route: 065
     Dates: start: 199805

REACTIONS (3)
  - Bone marrow toxicity [Recovered/Resolved with Sequelae]
  - Staphylococcal infection [Recovered/Resolved]
  - BLOOD CLOT IN CAROTID ARTERY [Recovered/Resolved]
